FAERS Safety Report 15022851 (Version 1)
Quarter: 2018Q2

REPORT INFORMATION
  Report Type: Spontaneous
  Country: US (occurrence: US)
  Receive Date: 20180618
  Receipt Date: 20180618
  Transmission Date: 20180711
  Serious: No
  Sender: FDA-Public Use
  Company Number: US-SHIRE-US201821788

PATIENT
  Sex: Male
  Weight: 95.24 kg

DRUGS (1)
  1. XIIDRA [Suspect]
     Active Substance: LIFITEGRAST
     Indication: DRY EYE
     Dosage: UNK, 2X/DAY:BID GTT IN EACH EYE
     Route: 047
     Dates: start: 2018

REACTIONS (4)
  - Product quality issue [Recovered/Resolved]
  - Intraocular pressure increased [Recovered/Resolved]
  - Metamorphopsia [Recovered/Resolved]
  - Drug dose omission [Recovered/Resolved]

NARRATIVE: CASE EVENT DATE: 2018
